FAERS Safety Report 14475160 (Version 1)
Quarter: 2018Q1

REPORT INFORMATION
  Report Type: Spontaneous
  Country: CN (occurrence: CN)
  Receive Date: 20180201
  Receipt Date: 20180201
  Transmission Date: 20180509
  Serious: Yes (Life-Threatening, Other)
  Sender: FDA-Public Use
  Company Number: CN-PFIZER INC-2018041571

PATIENT
  Age: 75 Year
  Sex: Male
  Weight: 75 kg

DRUGS (5)
  1. MEROPENEM. [Concomitant]
     Active Substance: MEROPENEM
     Indication: INFECTION
     Dosage: 1 G, 3X/DAY
     Route: 041
     Dates: start: 20171218, end: 20171229
  2. FLUCONAZOLE. [Suspect]
     Active Substance: FLUCONAZOLE
     Indication: INFECTION
     Dosage: 0.4 G, 1X/DAY
     Route: 041
     Dates: start: 20171219, end: 20171219
  3. MOXIFLOXACIN HYDROCHLORIDE. [Concomitant]
     Active Substance: MOXIFLOXACIN HYDROCHLORIDE
     Indication: INFECTION
     Dosage: 0.4 G, 1X/DAY
     Route: 041
     Dates: start: 20171215, end: 20171229
  4. FLUCONAZOLE. [Suspect]
     Active Substance: FLUCONAZOLE
     Dosage: 0.2 G, 1X/DAY
     Route: 041
     Dates: start: 20171220
  5. ANPUFU [Concomitant]
     Indication: CEREBRAL INFARCTION
     Dosage: 60 MG, 1X/DAY
     Route: 041
     Dates: start: 20171214, end: 20171220

REACTIONS (3)
  - Rash [Recovering/Resolving]
  - Arrhythmia [Recovering/Resolving]
  - Dyspnoea [Recovering/Resolving]

NARRATIVE: CASE EVENT DATE: 20171220
